FAERS Safety Report 9714100 (Version 2)
Quarter: 2015Q3

REPORT INFORMATION
  Report Type: Spontaneous
  Country: US (occurrence: US)
  Receive Date: 20131126
  Receipt Date: 20150803
  Transmission Date: 20151125
  Serious: No
  Sender: FDA-Public Use
  Company Number: US-GILEAD-2008-0018861

PATIENT
  Age: 82 Year
  Sex: Female

DRUGS (17)
  1. DETROL LA [Concomitant]
     Active Substance: TOLTERODINE TARTRATE
  2. TOPROL XL [Concomitant]
     Active Substance: METOPROLOL SUCCINATE
  3. MECLIZINE [Concomitant]
     Active Substance: MECLIZINE\MECLIZINE HYDROCHLORIDE
  4. PREVACID [Concomitant]
     Active Substance: LANSOPRAZOLE
  5. ASPIRIN. [Concomitant]
     Active Substance: ASPIRIN
  6. CELEBREX [Concomitant]
     Active Substance: CELECOXIB
  7. AVAPRO [Concomitant]
     Active Substance: IRBESARTAN
  8. FUROSEMIDE. [Concomitant]
     Active Substance: FUROSEMIDE
  9. SYNTHROID [Concomitant]
     Active Substance: LEVOTHYROXINE SODIUM
  10. FOLIC ACID. [Concomitant]
     Active Substance: FOLIC ACID
  11. LIPITOR [Concomitant]
     Active Substance: ATORVASTATIN CALCIUM
  12. ISOSORBIDE. [Concomitant]
     Active Substance: ISOSORBIDE
  13. ALLOPURINOL. [Concomitant]
     Active Substance: ALLOPURINOL
  14. GLIPIZIDE. [Concomitant]
     Active Substance: GLIPIZIDE
  15. LETAIRIS [Suspect]
     Active Substance: AMBRISENTAN
     Indication: PULMONARY ARTERIAL HYPERTENSION
     Route: 048
     Dates: start: 20080924, end: 20081104
  16. METFORMIN [Concomitant]
     Active Substance: METFORMIN HYDROCHLORIDE
  17. PLAVIX [Concomitant]
     Active Substance: CLOPIDOGREL BISULFATE

REACTIONS (1)
  - Oedema peripheral [Unknown]
